FAERS Safety Report 9052906 (Version 1)
Quarter: 2013Q1

REPORT INFORMATION
  Report Type: Spontaneous
  Country: BR (occurrence: BR)
  Receive Date: 20130207
  Receipt Date: 20130207
  Transmission Date: 20140127
  Serious: Yes (Death, Hospitalization)
  Sender: FDA-Public Use
  Company Number: PHHY2012BR042054

PATIENT
  Sex: Female

DRUGS (11)
  1. GALVUS [Suspect]
     Indication: DIABETES MELLITUS
     Dosage: 1 DF, BID  AFTER (BREAKFAST AND ANOTHER AFTER LUNCH)
     Dates: start: 201105
  2. GALVUS [Suspect]
     Dosage: 50 MG
     Dates: start: 20120514
  3. HYDRALAZINE [Suspect]
     Dosage: UNK UKN, UNK
  4. ENALAPRIL [Concomitant]
     Dosage: 50 MG, UNK
  5. AMLODIPINE [Concomitant]
     Dosage: 10 MG, UNK
  6. MOTILIUM [Concomitant]
     Dosage: UNK UKN, UNK
  7. EUTHYROX [Concomitant]
     Dosage: 50 MG, UNK
  8. PREDSIM [Concomitant]
     Dosage: 5 MG, UNK
  9. GLIFAGE [Concomitant]
     Dosage: 500 MG, UNK
  10. INSULIN HUMALOG [Concomitant]
     Dosage: UNK UKN, UNK
  11. INSULINE [Concomitant]
     Indication: DIABETES MELLITUS
     Dosage: UNK UKN, UNK

REACTIONS (4)
  - Infection [Fatal]
  - Urinary tract infection [Not Recovered/Not Resolved]
  - Gait disturbance [Recovering/Resolving]
  - Asthenia [Recovering/Resolving]
